FAERS Safety Report 19933393 (Version 2)
Quarter: 2021Q4

REPORT INFORMATION
  Report Type: Spontaneous
  Country: TW (occurrence: TW)
  Receive Date: 20211008
  Receipt Date: 20211022
  Transmission Date: 20220304
  Serious: Yes (Other)
  Sender: FDA-Public Use
  Company Number: TW-BAYER-2021A221258

PATIENT
  Age: 63 Year
  Sex: Male

DRUGS (8)
  1. SORAFENIB [Suspect]
     Active Substance: SORAFENIB
     Indication: Hepatocellular carcinoma
     Dosage: 400 MG, BID
     Route: 048
     Dates: start: 20170424, end: 20181231
  2. CISPLATIN [Concomitant]
     Active Substance: CISPLATIN
     Dosage: UNK
  3. MITOMYCIN C [Concomitant]
     Active Substance: MITOMYCIN
     Dosage: UNK
  4. FLUOROURACIL [Concomitant]
     Active Substance: FLUOROURACIL
     Dosage: UNK
  5. LIPIODOL [Concomitant]
     Active Substance: ETHIODIZED OIL
  6. DOXORUBICIN [Concomitant]
     Active Substance: DOXORUBICIN
     Dosage: UNK
  7. TENFOVIR [Concomitant]
     Dosage: UNK
  8. NIVOLUMAB [Concomitant]
     Active Substance: NIVOLUMAB
     Dosage: 160 MG EVERY 2 WEEK

REACTIONS (5)
  - Metastases to lung [None]
  - Rash [Recovered/Resolved]
  - Oedema peripheral [None]
  - Abdominal distension [None]
  - Dyspnoea exertional [Recovered/Resolved]

NARRATIVE: CASE EVENT DATE: 20170624
